FAERS Safety Report 9305148 (Version 1)
Quarter: 2013Q2

REPORT INFORMATION
  Report Type: Spontaneous
  Country: BR (occurrence: BR)
  Receive Date: 20130523
  Receipt Date: 20130523
  Transmission Date: 20140414
  Serious: Yes (Other)
  Sender: FDA-Public Use
  Company Number: PHHY2013BR050750

PATIENT
  Age: 16 Year
  Sex: Male

DRUGS (1)
  1. RITALINA [Suspect]
     Indication: ATTENTION DEFICIT/HYPERACTIVITY DISORDER
     Dosage: UNK UKN, UNK
     Route: 048

REACTIONS (9)
  - Autism [Unknown]
  - Drug dependence [Unknown]
  - Feeling abnormal [Unknown]
  - Learning disorder [Unknown]
  - Drug administered to patient of inappropriate age [Unknown]
  - Aggression [Unknown]
  - Insomnia [Unknown]
  - Agitation [Unknown]
  - Disturbance in attention [Unknown]
